FAERS Safety Report 8621909-9 (Version None)
Quarter: 2012Q3

REPORT INFORMATION
  Report Type: 
  Country: None (occurrence: None)
  Receive Date: 20120822
  Receipt Date: 20120822
  Transmission Date: 20120928
  Serious: Yes (Hospitalization)
  Sender: FDA-Public Use
  Company Number: None

PATIENT
  Age: 57 Year
  Sex: Female
  Weight: 90.7194 kg

DRUGS (1)
  1. IBUPROFEN [Suspect]
     Indication: MUSCLE SPASMS
     Dosage: 2 EA 200MG TABLETS ONE TIME PO
     Route: 048
     Dates: start: 20120817, end: 20120817

REACTIONS (1)
  - ANGIOEDEMA [None]
